FAERS Safety Report 18068017 (Version 4)
Quarter: 2020Q4

REPORT INFORMATION
  Report Type: Spontaneous
  Country: US (occurrence: US)
  Receive Date: 20200724
  Receipt Date: 20201022
  Transmission Date: 20210113
  Serious: No
  Sender: FDA-Public Use
  Company Number: US-UNITED THERAPEUTICS-UNT-2020-010555

PATIENT
  Sex: Male
  Weight: 79.82 kg

DRUGS (5)
  1. REMODULIN [Suspect]
     Active Substance: TREPROSTINIL
     Dosage: 0.0118 ?G/KG, CONTINUING
     Route: 058
     Dates: start: 202007
  2. REMODULIN [Suspect]
     Active Substance: TREPROSTINIL
     Dosage: 0.0214 ?G/KG, CONTINUING
     Route: 058
     Dates: start: 2020
  3. REMODULIN [Suspect]
     Active Substance: TREPROSTINIL
     Indication: PULMONARY ARTERIAL HYPERTENSION
     Dosage: 0.0278 ?G/KG, CONTINUING
     Route: 058
     Dates: start: 2020
  4. REMODULIN [Suspect]
     Active Substance: TREPROSTINIL
     Indication: PULMONARY ARTERIAL HYPERTENSION
     Dosage: UNK UNK, CONTINUING
     Route: 058
     Dates: start: 20200708
  5. ELIQUIS [Concomitant]
     Active Substance: APIXABAN
     Indication: PRODUCT USED FOR UNKNOWN INDICATION
     Dosage: UNK
     Route: 065

REACTIONS (13)
  - Pain [Unknown]
  - Ageusia [Unknown]
  - Decreased appetite [Unknown]
  - Headache [Recovering/Resolving]
  - Peripheral swelling [Unknown]
  - Infusion site pain [Recovering/Resolving]
  - Nausea [Unknown]
  - Pain in jaw [Unknown]
  - Infusion site erythema [Recovering/Resolving]
  - Diarrhoea [Unknown]
  - Pain in extremity [Recovering/Resolving]
  - Weight increased [Unknown]
  - Bone pain [Unknown]

NARRATIVE: CASE EVENT DATE: 2020
